FAERS Safety Report 20488918 (Version 2)
Quarter: 2022Q1

REPORT INFORMATION
  Report Type: Spontaneous
  Country: US (occurrence: US)
  Receive Date: 20220218
  Receipt Date: 20220314
  Transmission Date: 20220424
  Serious: No
  Sender: FDA-Public Use
  Company Number: US-SA-SAC20220214000297

PATIENT
  Age: 27 Year
  Sex: Female

DRUGS (1)
  1. DUPIXENT [Suspect]
     Active Substance: DUPILUMAB
     Indication: Dermatitis atopic
     Dosage: 300 MG, QOW
     Route: 058
     Dates: start: 20211109

REACTIONS (7)
  - COVID-19 [Recovered/Resolved]
  - SARS-CoV-2 test positive [Recovered/Resolved]
  - Somnolence [Recovering/Resolving]
  - Upper-airway cough syndrome [Recovering/Resolving]
  - Feeling abnormal [Recovering/Resolving]
  - Asthma [Recovering/Resolving]
  - Migraine [Unknown]

NARRATIVE: CASE EVENT DATE: 20220204
